FAERS Safety Report 14344908 (Version 1)
Quarter: 2018Q1

REPORT INFORMATION
  Report Type: Spontaneous
  Country: IN (occurrence: IN)
  Receive Date: 20180103
  Receipt Date: 20180103
  Transmission Date: 20180509
  Serious: Yes (Life-Threatening, Hospitalization, Other)
  Sender: FDA-Public Use
  Company Number: IN-CIPLA LTD.-2017IN22617

PATIENT

DRUGS (4)
  1. OLANZAPINE. [Suspect]
     Active Substance: OLANZAPINE
     Indication: BIPOLAR DISORDER
     Dosage: 10 MG/DAY
     Route: 065
     Dates: end: 2005
  2. HALOPERIDOL. [Interacting]
     Active Substance: HALOPERIDOL
     Indication: BIPOLAR DISORDER
     Dosage: UNK
     Route: 048
  3. LITHIUM. [Interacting]
     Active Substance: LITHIUM
     Indication: BIPOLAR DISORDER
     Dosage: 800 MG/DAY
     Route: 065
     Dates: end: 2005
  4. HALOPERIDOL. [Interacting]
     Active Substance: HALOPERIDOL
     Dosage: UNK
     Route: 042

REACTIONS (7)
  - Catatonia [Recovering/Resolving]
  - Tremor [Recovering/Resolving]
  - Neurotoxicity [Recovering/Resolving]
  - Neuroleptic malignant syndrome [Recovered/Resolved with Sequelae]
  - Renal failure [Unknown]
  - Cerebellar atrophy [Unknown]
  - Drug interaction [Unknown]

NARRATIVE: CASE EVENT DATE: 2005
